FAERS Safety Report 20130903 (Version 2)
Quarter: 2021Q4

REPORT INFORMATION
  Report Type: Spontaneous
  Country: US (occurrence: US)
  Receive Date: 20211130
  Receipt Date: 20211206
  Transmission Date: 20220303
  Serious: No
  Sender: FDA-Public Use
  Company Number: US-BEH-2021138758

PATIENT
  Sex: Male

DRUGS (1)
  1. HIZENTRA [Suspect]
     Active Substance: HUMAN IMMUNOGLOBULIN G
     Dosage: 50 GRAM, BIW
     Route: 058

REACTIONS (8)
  - Infusion site pruritus [Unknown]
  - Recalled product administered [Unknown]
  - Infusion site rash [Unknown]
  - Recalled product administered [Unknown]
  - Renal disorder [Unknown]
  - Liver disorder [Unknown]
  - Recalled product administered [Unknown]
  - Recalled product administered [Unknown]

NARRATIVE: CASE EVENT DATE: 20210301
